FAERS Safety Report 12709608 (Version 1)
Quarter: 2016Q3

REPORT INFORMATION
  Report Type: Spontaneous
  Country: US (occurrence: US)
  Receive Date: 20160901
  Receipt Date: 20160901
  Transmission Date: 20161109
  Serious: Yes (Other)
  Sender: FDA-Public Use
  Company Number: US-TEVA-689465USA

PATIENT
  Sex: Female
  Weight: 92.62 kg

DRUGS (1)
  1. GABAPENTIN. [Suspect]
     Active Substance: GABAPENTIN
     Indication: FIBROMYALGIA
     Dosage: 2400 MILLIGRAM DAILY;
     Route: 048

REACTIONS (3)
  - Choking [Unknown]
  - Product use issue [Not Recovered/Not Resolved]
  - Product use issue [Unknown]
